FAERS Safety Report 24195967 (Version 1)
Quarter: 2024Q3

REPORT INFORMATION
  Report Type: Spontaneous
  Country: PK (occurrence: PK)
  Receive Date: 20240809
  Receipt Date: 20240809
  Transmission Date: 20241016
  Serious: Yes (Other)
  Sender: BRISTOL MYERS SQUIBB
  Company Number: PK-BRISTOL-MYERS SQUIBB COMPANY-2024-121105

PATIENT
  Age: 49 Year
  Sex: Female

DRUGS (6)
  1. ENTECAVIR [Suspect]
     Active Substance: ENTECAVIR
     Indication: Prophylaxis
  2. RIBAVIRIN [Suspect]
     Active Substance: RIBAVIRIN
     Indication: Chronic hepatitis C
  3. INTERFERON ALFA-2B [Suspect]
     Active Substance: INTERFERON ALFA-2B
     Indication: Chronic hepatitis C
     Dosage: SIXTH INJECTION, IFN--2B 100 ?G/WEEK SUBCUTANEOUSLY
     Route: 058
  4. HYDROXYCHLOROQUINE [Concomitant]
     Active Substance: HYDROXYCHLOROQUINE
     Indication: Rheumatoid factor
  5. IMURAN [Concomitant]
     Active Substance: AZATHIOPRINE
     Indication: Rheumatoid factor
  6. MYCOPHENOLATE MOFETIL [Concomitant]
     Active Substance: MYCOPHENOLATE MOFETIL
     Indication: Product used for unknown indication

REACTIONS (1)
  - Excessive dynamic airway collapse [Unknown]
